FAERS Safety Report 4845830-7 (Version None)
Quarter: 2005Q4

REPORT INFORMATION
  Report Type: 
  Country: None (occurrence: None)
  Receive Date: 20051202
  Receipt Date: 20051202
  Transmission Date: 20060501
  Serious: Yes (Hospitalization)
  Sender: FDA-Public Use
  Company Number: None

PATIENT
  Sex: Male
  Weight: 61.2356 kg

DRUGS (9)
  1. VALPROIC ACID [Suspect]
     Indication: PROSTATE CANCER
     Dosage: 36ML   QD   PO
     Route: 048
     Dates: start: 20051010, end: 20051120
  2. PLAVIX [Concomitant]
  3. ASPIRIN [Concomitant]
  4. M.V.I. [Concomitant]
  5. ZOMETA [Concomitant]
  6. MIRALAX [Concomitant]
  7. LACTAID [Concomitant]
  8. FLOMAX [Concomitant]
  9. OXYCODONE [Concomitant]

REACTIONS (7)
  - DISEASE PROGRESSION [None]
  - DYSPNOEA [None]
  - LYMPHADENOPATHY [None]
  - METASTASES TO BONE [None]
  - METASTASES TO LIVER [None]
  - PLEURAL DISORDER [None]
  - PLEURAL EFFUSION [None]
